FAERS Safety Report 15490321 (Version 1)
Quarter: 2018Q4

REPORT INFORMATION
  Report Type: Spontaneous
  Country: US (occurrence: US)
  Receive Date: 20181011
  Receipt Date: 20181011
  Transmission Date: 20190205
  Serious: Yes (Other)
  Sender: FDA-Public Use
  Company Number: US-JAZZ-2014-US-012327

PATIENT
  Sex: Male

DRUGS (3)
  1. XYREM [Suspect]
     Active Substance: SODIUM OXYBATE
     Dosage: 6.25 G, BID
     Route: 048
     Dates: start: 201206
  2. XYREM [Suspect]
     Active Substance: SODIUM OXYBATE
     Dosage: 6.5 G, BID
     Route: 048
     Dates: start: 200811, end: 2012
  3. XYREM [Suspect]
     Active Substance: SODIUM OXYBATE
     Indication: INSOMNIA
     Dosage: 3 G, BID
     Route: 048
     Dates: start: 200810, end: 200811

REACTIONS (7)
  - Ankle fracture [Unknown]
  - Pain in extremity [Unknown]
  - Fall [Unknown]
  - Foot fracture [Recovering/Resolving]
  - Dizziness [Unknown]
  - Fracture [Unknown]
  - Prescribed overdose [Unknown]

NARRATIVE: CASE EVENT DATE: 2008
